FAERS Safety Report 8337686 (Version 3)
Quarter: 2013Q4

REPORT INFORMATION
  Report Type: Spontaneous
  Country: US (occurrence: US)
  Receive Date: 20120116
  Receipt Date: 20131028
  Transmission Date: 20140711
  Serious: No
  Sender: FDA-Public Use
  Company Number: US-JNJFOC-20120102388

PATIENT
  Age: 33 Year
  Sex: Female
  Weight: 54.89 kg

DRUGS (1)
  1. INVEGA SUSTENNA [Suspect]
     Indication: SCHIZOPHRENIA
     Route: 030
     Dates: start: 20100526

REACTIONS (4)
  - Drug dose omission [Recovered/Resolved]
  - Accidental exposure to product [Recovered/Resolved]
  - Device leakage [Unknown]
  - Needle issue [Unknown]
